FAERS Safety Report 23798855 (Version 2)
Quarter: 2024Q2

REPORT INFORMATION
  Report Type: Spontaneous
  Country: FR (occurrence: FR)
  Receive Date: 20240430
  Receipt Date: 20240618
  Transmission Date: 20240716
  Serious: Yes (Other)
  Sender: FDA-Public Use
  Company Number: FR-AUROBINDO-AUR-APL-2024-020055

PATIENT
  Age: 78 Year
  Sex: Female

DRUGS (4)
  1. LACTULOSE [Suspect]
     Active Substance: LACTULOSE
     Indication: Constipation
     Dosage: 10 GRAM
     Route: 048
     Dates: start: 2019, end: 20240414
  2. LACTULOSE [Suspect]
     Active Substance: LACTULOSE
     Dosage: 5 GRAM
     Route: 048
     Dates: start: 20240415
  3. GLYCERIN [Suspect]
     Active Substance: GLYCERIN
     Indication: Constipation
     Dosage: UNK
     Route: 054
  4. PROBIOTICS NOS [Concomitant]
     Active Substance: PROBIOTICS NOS
     Indication: Product used for unknown indication
     Dosage: ONE CAPSULE IN THE MORNING FOR 9 DAYS
     Route: 065

REACTIONS (4)
  - Hyponatraemia [Unknown]
  - Hypokalaemia [Unknown]
  - Diarrhoea [Recovered/Resolved]
  - Intentional product use issue [Unknown]

NARRATIVE: CASE EVENT DATE: 20240101
